FAERS Safety Report 8359852-5 (Version None)
Quarter: 2012Q2

REPORT INFORMATION
  Report Type: 
  Country: None (occurrence: None)
  Receive Date: 20120515
  Receipt Date: 20120504
  Transmission Date: 20120825
  Serious: Yes (Hospitalization, Other)
  Sender: FDA-Public Use
  Company Number: US-ASTELLAS-2012US004314

PATIENT
  Sex: Female
  Weight: 68 kg

DRUGS (6)
  1. PROGRAF [Suspect]
     Dosage: 4 MG, BID
     Route: 048
     Dates: start: 20120428
  2. MYCOPHENOLATE MOFETIL [Suspect]
     Dosage: 1000 UNK, BID
     Route: 048
     Dates: start: 20120425
  3. BLINDED ASP8597 [Suspect]
     Indication: RENAL TRANSPLANT
     Dosage: TOTAL DOSE
     Route: 042
     Dates: start: 20120424, end: 20120424
  4. PROGRAF [Suspect]
     Indication: RENAL TRANSPLANT
     Dosage: 1 MG, BID
     Route: 048
     Dates: start: 20120426, end: 20120426
  5. PROGRAF [Suspect]
     Dosage: 2 MG, BID
     Route: 048
     Dates: start: 20120427, end: 20120427
  6. MYCOPHENOLATE MOFETIL [Suspect]
     Indication: RENAL TRANSPLANT
     Dosage: 1000 UNK, BID
     Route: 042
     Dates: start: 20120424, end: 20120424

REACTIONS (2)
  - THROMBOSIS [None]
  - URETERIC OBSTRUCTION [None]
